FAERS Safety Report 12683627 (Version 1)
Quarter: 2016Q3

REPORT INFORMATION
  Report Type: Spontaneous
  Country: None (occurrence: None)
  Receive Date: 20160824
  Receipt Date: 20160824
  Transmission Date: 20161109
  Serious: No
  Sender: FDA-Public Use
  Company Number: None

PATIENT
  Age: 70 Year
  Sex: Male

DRUGS (1)
  1. DOFETILIDE. [Suspect]
     Active Substance: DOFETILIDE

REACTIONS (5)
  - Ventricular fibrillation [None]
  - Electrocardiogram QT prolonged [None]
  - Treatment noncompliance [None]
  - Cardio-respiratory arrest [None]
  - Dysphagia [None]

NARRATIVE: CASE EVENT DATE: 20160622
